FAERS Safety Report 8466559 (Version 3)
Quarter: 2012Q4

REPORT INFORMATION
  Report Type: 
  Country: CH (occurrence: CH)
  Receive Date: 20120319
  Receipt Date: 20120904
  Transmission Date: 20130627
  Serious: Yes (Hospitalization)
  Sender: FDA-Public Use
  Company Number: CH-ASTRAZENECA-2012SE16279

PATIENT
  Sex: Female
  Weight: 73 kg

DRUGS (8)
  1. BRILIQUE [Suspect]
     Route: 048
     Dates: start: 20120210, end: 20120306
  2. TIATRAL [Suspect]
     Route: 048
  3. ATACAND [Concomitant]
     Indication: HYPERTENSION
     Route: 048
  4. SORTIS [Concomitant]
     Indication: HYPERCHOLESTEROLAEMIA
     Route: 048
  5. BUDENOFALK [Concomitant]
     Indication: COLITIS MICROSCOPIC
  6. PANTOZOL [Concomitant]
     Indication: HYPERCHLORHYDRIA
  7. HALCION [Concomitant]
     Indication: SLEEP DISORDER
  8. HALCION [Concomitant]
     Indication: SLEEP DISORDER

REACTIONS (2)
  - Cerebrovascular accident [Not Recovered/Not Resolved]
  - Drug ineffective [Not Recovered/Not Resolved]
